FAERS Safety Report 5043473-6 (Version None)
Quarter: 2006Q3

REPORT INFORMATION
  Report Type: 
  Country: None (occurrence: None)
  Receive Date: 20060705
  Receipt Date: 20060606
  Transmission Date: 20061208
  Serious: Yes (Death)
  Sender: FDA-Public Use
  Company Number: US-BOEHRINGER INGELHEIM PHARMACEUTICALS, INC.-2006-BP-06516BP

PATIENT
  Sex: Male
  Weight: 45.45 kg

DRUGS (3)
  1. APTIVUS/RITONAVIR CAPSULES [Suspect]
     Indication: HIV INFECTION
     Dosage: TPV 1000MG/RTV ?
     Route: 048
     Dates: start: 20050501, end: 20050701
  2. FUZEON [Concomitant]
     Indication: HIV INFECTION
     Dates: start: 20050501, end: 20050701
  3. COMBIVIR [Concomitant]
     Indication: HIV INFECTION
     Dates: start: 20050501, end: 20050701

REACTIONS (3)
  - BLINDNESS [None]
  - DEAFNESS [None]
  - MENINGITIS CRYPTOCOCCAL [None]
